FAERS Safety Report 20486353 (Version 1)
Quarter: 2022Q1

REPORT INFORMATION
  Report Type: Spontaneous
  Country: US (occurrence: US)
  Receive Date: 20220217
  Receipt Date: 20220217
  Transmission Date: 20220423
  Serious: Yes (Other)
  Sender: FDA-Public Use
  Company Number: US-GLAXOSMITHKLINE-US2022GSK026508

PATIENT

DRUGS (12)
  1. RANITIDINE HYDROCHLORIDE [Suspect]
     Active Substance: RANITIDINE HYDROCHLORIDE
     Indication: Dyspepsia
     Dosage: UNK, QD
     Route: 065
     Dates: start: 200901, end: 201512
  2. RANITIDINE HYDROCHLORIDE [Suspect]
     Active Substance: RANITIDINE HYDROCHLORIDE
     Indication: Dyspepsia
  3. RANITIDINE HYDROCHLORIDE [Suspect]
     Active Substance: RANITIDINE HYDROCHLORIDE
     Indication: Gastrooesophageal reflux disease
  4. RANITIDINE HYDROCHLORIDE [Suspect]
     Active Substance: RANITIDINE HYDROCHLORIDE
     Indication: Dyspepsia
     Dosage: UNK, QD
     Route: 065
     Dates: start: 200901, end: 201512
  5. RANITIDINE HYDROCHLORIDE [Suspect]
     Active Substance: RANITIDINE HYDROCHLORIDE
     Indication: Dyspepsia
  6. RANITIDINE HYDROCHLORIDE [Suspect]
     Active Substance: RANITIDINE HYDROCHLORIDE
     Indication: Gastrooesophageal reflux disease
  7. ZANTAC [Suspect]
     Active Substance: RANITIDINE HYDROCHLORIDE
     Indication: Dyspepsia
     Dosage: 75 MG, QD
     Route: 065
     Dates: start: 200901, end: 201512
  8. ZANTAC [Suspect]
     Active Substance: RANITIDINE HYDROCHLORIDE
     Indication: Dyspepsia
     Dosage: 150 MG, QD
     Route: 065
     Dates: start: 200901, end: 201512
  9. ZANTAC [Suspect]
     Active Substance: RANITIDINE HYDROCHLORIDE
     Indication: Gastrooesophageal reflux disease
  10. RANITIDINE [Suspect]
     Active Substance: RANITIDINE
     Indication: Dyspepsia
     Dosage: 75 MG, QD
     Route: 065
     Dates: start: 200901, end: 201512
  11. RANITIDINE [Suspect]
     Active Substance: RANITIDINE
     Indication: Dyspepsia
     Dosage: 150 MG, QD
     Route: 065
     Dates: start: 200901, end: 201512
  12. RANITIDINE [Suspect]
     Active Substance: RANITIDINE
     Indication: Gastrooesophageal reflux disease

REACTIONS (1)
  - Gastric cancer [Unknown]
